FAERS Safety Report 4531018-6 (Version None)
Quarter: 2004Q4

REPORT INFORMATION
  Report Type: 
  Country: None (occurrence: None)
  Receive Date: 20041215
  Receipt Date: 20041206
  Transmission Date: 20050328
  Serious: No
  Sender: FDA-Public Use
  Company Number: CH-2004-031362

PATIENT
  Age: 49 Year
  Sex: Female
  Weight: 63 kg

DRUGS (1)
  1. ULTRAVIST 370 [Suspect]
     Indication: UROGRAPHY
     Dosage: INTRAVENOUS
     Route: 042
     Dates: start: 20040902, end: 20040902

REACTIONS (13)
  - BLOOD PRESSURE DECREASED [None]
  - CONTRAST MEDIA REACTION [None]
  - CYANOSIS [None]
  - ERYTHEMA [None]
  - FEELING HOT [None]
  - HEADACHE [None]
  - HEART RATE DECREASED [None]
  - NAUSEA [None]
  - PARAESTHESIA ORAL [None]
  - PERIORBITAL OEDEMA [None]
  - PULSE PRESSURE DECREASED [None]
  - SOMNOLENCE [None]
  - VOMITING [None]
